FAERS Safety Report 19849426 (Version 2)
Quarter: 2021Q3

REPORT INFORMATION
  Report Type: Report from Study
  Country: DE (occurrence: DE)
  Receive Date: 20210917
  Receipt Date: 20210930
  Transmission Date: 20211014
  Serious: Yes (Death)
  Sender: FDA-Public Use
  Company Number: DE-MYLANLABS-2021M1063514

PATIENT
  Age: 45 Year
  Sex: Female
  Weight: 41 kg

DRUGS (3)
  1. PEGFILGRASTIM [Suspect]
     Active Substance: PEGFILGRASTIM
     Dosage: 6 MILLIGRAM (STRENGTH: 6MG)
     Route: 058
     Dates: start: 20210201, end: 20210201
  2. PEGFILGRASTIM [Suspect]
     Active Substance: PEGFILGRASTIM
     Dosage: 6 MILLIGRAM (STRENGTH: 6MG)
     Route: 058
     Dates: start: 20210217, end: 20210217
  3. PEGFILGRASTIM [Suspect]
     Active Substance: PEGFILGRASTIM
     Indication: PRODUCT USED FOR UNKNOWN INDICATION
     Dosage: 6 MILLIGRAM (STRENGTH: 6MG)
     Route: 058
     Dates: start: 20210118, end: 20210118

REACTIONS (1)
  - Cachexia [Fatal]

NARRATIVE: CASE EVENT DATE: 20210221
